FAERS Safety Report 22021330 (Version 1)
Quarter: 2023Q1

REPORT INFORMATION
  Report Type: Spontaneous
  Country: JP (occurrence: JP)
  Receive Date: 20230222
  Receipt Date: 20230222
  Transmission Date: 20230417
  Serious: Yes (Death)
  Sender: FDA-Public Use
  Company Number: JP-BAYER-2023A021593

PATIENT
  Age: 89 Year
  Sex: Female

DRUGS (3)
  1. GADOBUTROL [Suspect]
     Active Substance: GADOBUTROL
     Indication: Lung neoplasm malignant
     Dosage: UNK UNK, ONCE
     Dates: start: 20230220, end: 20230220
  2. GADOBUTROL [Suspect]
     Active Substance: GADOBUTROL
     Indication: Metastases to central nervous system
  3. GADOBUTROL [Suspect]
     Active Substance: GADOBUTROL
     Indication: Magnetic resonance imaging

REACTIONS (2)
  - Acute pulmonary oedema [Fatal]
  - Hypotension [None]

NARRATIVE: CASE EVENT DATE: 20230220
